FAERS Safety Report 9056973 (Version 1)
Quarter: 2013Q1

REPORT INFORMATION
  Report Type: Report from Study
  Country: US (occurrence: US)
  Receive Date: 20130131
  Receipt Date: 20130131
  Transmission Date: 20140127
  Serious: Yes (Hospitalization)
  Sender: FDA-Public Use
  Company Number: US-ABBOTT-12P-163-0989873-00

PATIENT
  Age: 35 None
  Sex: Female
  Weight: 61.29 kg

DRUGS (3)
  1. HUMIRA [Suspect]
     Indication: CROHN^S DISEASE
     Dates: start: 2012
  2. AZATHIOPRINE [Concomitant]
     Indication: CROHN^S DISEASE
  3. FERROUS SULFATE [Concomitant]
     Indication: ANAEMIA

REACTIONS (1)
  - Infected fistula [Not Recovered/Not Resolved]
